FAERS Safety Report 5622628-3 (Version None)
Quarter: 2008Q1

REPORT INFORMATION
  Report Type: 
  Country: None (occurrence: None)
  Receive Date: 20080211
  Receipt Date: 20080211
  Transmission Date: 20080703
  Serious: Yes (Hospitalization)
  Sender: FDA-Public Use
  Company Number: None

PATIENT
  Age: 63 Year
  Sex: Male

DRUGS (2)
  1. CLARITHROMYCIN [Suspect]
     Dosage: 500MG BID PO
     Route: 048
     Dates: start: 20071213, end: 20071217
  2. WARFARIN SODIUM [Suspect]
     Dosage: 5MG EVERY DAY PO
     Route: 048
     Dates: start: 20040101, end: 20071220

REACTIONS (5)
  - INTERNATIONAL NORMALISED RATIO ABNORMAL [None]
  - PRURITUS [None]
  - PURPURA [None]
  - SKIN HAEMORRHAGE [None]
  - URTICARIA [None]
